FAERS Safety Report 17061490 (Version 1)
Quarter: 2019Q4

REPORT INFORMATION
  Report Type: Spontaneous
  Country: US (occurrence: US)
  Receive Date: 20191121
  Receipt Date: 20191121
  Transmission Date: 20200122
  Serious: No
  Sender: FDA-Public Use
  Company Number: US-BAUSCH-BL-2019-059778

PATIENT
  Age: 59 Year
  Sex: Female
  Weight: 68.55 kg

DRUGS (4)
  1. ALAWAY [Suspect]
     Active Substance: KETOTIFEN FUMARATE
     Route: 047
     Dates: start: 201910, end: 201910
  2. ALAWAY [Suspect]
     Active Substance: KETOTIFEN FUMARATE
     Indication: EYE ALLERGY
     Dosage: THERAPY START DATE: ABOUT 3 YEARS AGO
     Route: 047
     Dates: end: 2019
  3. ALAWAY [Suspect]
     Active Substance: KETOTIFEN FUMARATE
     Route: 047
     Dates: start: 201910
  4. LORATADINE. [Concomitant]
     Active Substance: LORATADINE
     Indication: PRODUCT USED FOR UNKNOWN INDICATION
     Route: 048

REACTIONS (2)
  - Eye pain [Recovered/Resolved]
  - Product quality issue [Unknown]

NARRATIVE: CASE EVENT DATE: 201910
